FAERS Safety Report 6385680-6 (Version None)
Quarter: 2009Q4

REPORT INFORMATION
  Report Type: 
  Country: None (occurrence: None)
  Receive Date: 20091002
  Receipt Date: 20081024
  Transmission Date: 20100525
  Serious: No
  Sender: FDA-Public Use
  Company Number: US-ASTRAZENECA-2008UW23870

PATIENT
  Age: 59 Year
  Sex: Female
  Weight: 59.9 kg

DRUGS (2)
  1. ARIMIDEX [Suspect]
     Indication: BREAST CANCER
     Route: 048
  2. HERCEPTIN [Concomitant]

REACTIONS (2)
  - LACRIMAL DISORDER [None]
  - LACRIMATION INCREASED [None]
